FAERS Safety Report 19153398 (Version 2)
Quarter: 2021Q2

REPORT INFORMATION
  Report Type: Spontaneous
  Country: NL (occurrence: NL)
  Receive Date: 20210419
  Receipt Date: 20210424
  Transmission Date: 20210717
  Serious: Yes (Hospitalization)
  Sender: FDA-Public Use
  Company Number: NL-TEVA-2021-NL-1901552

PATIENT
  Sex: Male
  Weight: 80 kg

DRUGS (11)
  1. KALIUMCHLORIDE DRANK 75MG/ML (1MMOL/ML) / BRAND NAME NOT SPECIFIED [Concomitant]
     Dosage: 60 MILLIGRAM DAILY; DRINK, THERAPY START AND END DATE: ASKU
  2. ASCORBINEZUUR TABLET 500MG / BRAND NAME NOT SPECIFIED [Concomitant]
     Dosage: 500 MILLIGRAM DAILY; THERAPY START AND END DATE: ASKU
  3. LEVOCETIRIZINE TABLET FO 5MG / BRAND NAME NOT SPECIFIED [Concomitant]
     Active Substance: LEVOCETIRIZINE
     Dosage: 5 MILLIGRAM DAILY; THERAPY START AND END DATE: ASKU
  4. PANTOPRAZOL TABLET MSR 20MG / BRAND NAME NOT SPECIFIED [Concomitant]
     Active Substance: PANTOPRAZOLE
     Dosage: 20 MILLIGRAM DAILY; THERAPY START AND END DATE: ASKU
  5. TIOTROPIUM INHALATIECAPSULE 18UG / BRAND NAME NOT SPECIFIED [Concomitant]
     Dosage: 18 MICROGRAM DAILY; INHALATION, THERAPY START AND END DATE: ASKU
  6. ACENOCOUMAROL TABLET 1MG / BRAND NAME NOT SPECIFIED [Concomitant]
     Active Substance: ACENOCOUMAROL
     Dosage: ACCORDING TO SCHEDULE,  THERAPY START AND END DATE: ASKU
  7. THIAMINE TABLET  50MG / BRAND NAME NOT SPECIFIED [Concomitant]
     Dosage: 50 MILLIGRAM DAILY;  THERAPY START AND END DATE: ASKU
  8. METFORMINE TABLET   500MG / BRAND NAME NOT SPECIFIED [Concomitant]
     Active Substance: METFORMIN HYDROCHLORIDE
     Dosage: 2000 MILLIGRAM DAILY;  THERAPY START AND END DATE: ASKU
  9. BECLOMETASON/FORMOTEROL INHALATIEPOEDER 200/6UG/DO / BRAND NAME NOT SP [Concomitant]
     Dosage: 4 DOSAGE FORMS DAILY; THERAPY START AND END DATE: ASKU
  10. ROSUVASTATINE TABLET 40MG / BRAND NAME NOT SPECIFIED [Suspect]
     Active Substance: ROSUVASTATIN
     Indication: LOW DENSITY LIPOPROTEIN INCREASED
     Dosage: 40 MILLIGRAM DAILY;
     Route: 065
     Dates: start: 20200326, end: 20210114
  11. VITAMINE B COMPLEX TABLET (1) ? NON?CURRENT DRUG / BRAND NAME NOT SPEC [Concomitant]
     Dosage: 1 DOSAGE FORMS DAILY;  THERAPY START AND END DATE: ASKU

REACTIONS (1)
  - Renal tubular necrosis [Not Recovered/Not Resolved]
